FAERS Safety Report 12568183 (Version 4)
Quarter: 2016Q3

REPORT INFORMATION
  Report Type: Spontaneous
  Country: US (occurrence: US)
  Receive Date: 20160718
  Receipt Date: 20160901
  Transmission Date: 20161109
  Serious: Yes (Hospitalization)
  Sender: FDA-Public Use
  Company Number: US-ACTELION-A-US2016-139149

PATIENT
  Age: 46 Year
  Sex: Female

DRUGS (1)
  1. TRACLEER [Suspect]
     Active Substance: BOSENTAN
     Indication: PULMONARY ARTERIAL HYPERTENSION
     Dosage: 125 MG, BID
     Route: 048
     Dates: start: 2016

REACTIONS (5)
  - Haemorrhage [Unknown]
  - Packed red blood cell transfusion [Unknown]
  - Vascular cauterisation [Unknown]
  - Haematocrit decreased [Unknown]
  - Gastric antral vascular ectasia [Unknown]
